FAERS Safety Report 23672845 (Version 2)
Quarter: 2024Q2

REPORT INFORMATION
  Report Type: Spontaneous
  Country: FR (occurrence: FR)
  Receive Date: 20240326
  Receipt Date: 20240513
  Transmission Date: 20240716
  Serious: Yes (Other)
  Sender: FDA-Public Use
  Company Number: FR-PFIZER INC-PV202300106469

PATIENT

DRUGS (1)
  1. ATGAM [Suspect]
     Active Substance: EQUINE THYMOCYTE IMMUNE GLOBULIN
     Indication: Aplastic anaemia
     Dosage: 40 MG/KG, DAILY
     Dates: start: 20221220

REACTIONS (3)
  - Myelodysplastic syndrome [Unknown]
  - Clonal evolution [Unknown]
  - Treatment failure [Unknown]
